FAERS Safety Report 9790985 (Version 2)
Quarter: 2014Q1

REPORT INFORMATION
  Report Type: Report from Study
  Country: US (occurrence: US)
  Receive Date: 20131231
  Receipt Date: 20140102
  Transmission Date: 20141002
  Serious: Yes (Hospitalization)
  Sender: FDA-Public Use
  Company Number: US-ABBVIE-13P-163-1183800-00

PATIENT
  Age: 39 Year
  Sex: Male

DRUGS (2)
  1. HUMIRA [Suspect]
     Indication: CROHN^S DISEASE
     Dates: start: 201203
  2. PROBIOTIC [Concomitant]

REACTIONS (20)
  - Lipase increased [Recovered/Resolved with Sequelae]
  - Pancreatitis [Recovering/Resolving]
  - Localised infection [Not Recovered/Not Resolved]
  - Influenza like illness [Not Recovered/Not Resolved]
  - Pyrexia [Not Recovered/Not Resolved]
  - Pain [Not Recovered/Not Resolved]
  - Pruritus [Unknown]
  - Lice infestation [Unknown]
  - Anaemia [Unknown]
  - Nausea [Unknown]
  - Vomiting [Unknown]
  - Amylase increased [Recovered/Resolved]
  - Haematochezia [Unknown]
  - Clostridium difficile infection [Unknown]
  - Crohn^s disease [Unknown]
  - Abdominal pain [Unknown]
  - Diarrhoea [Recovering/Resolving]
  - Weight decreased [Unknown]
  - Arthralgia [Unknown]
  - Lipase increased [Recovered/Resolved with Sequelae]
